FAERS Safety Report 10203389 (Version 1)
Quarter: 2014Q2

REPORT INFORMATION
  Report Type: Spontaneous
  Country: AU (occurrence: AU)
  Receive Date: 20140529
  Receipt Date: 20140529
  Transmission Date: 20141212
  Serious: Yes (Hospitalization, Other)
  Sender: FDA-Public Use
  Company Number: AU-BAYER-2014-064924

PATIENT
  Age: 49 Year
  Sex: Male

DRUGS (1)
  1. KOGENATE FS [Suspect]

REACTIONS (2)
  - Knee arthroplasty [None]
  - Arthritis infective [None]
